FAERS Safety Report 7741247-6 (Version None)
Quarter: 2011Q3

REPORT INFORMATION
  Report Type: 
  Country: None (occurrence: None)
  Receive Date: 20110909
  Receipt Date: 20110902
  Transmission Date: 20111222
  Serious: Yes (Other)
  Sender: FDA-Public Use
  Company Number: US-PFIZER INC-2011207862

PATIENT
  Age: 68 Year
  Sex: Male

DRUGS (3)
  1. NOVOLIN N [Suspect]
  2. GLIPIZIDE [Suspect]
  3. METFORMIN HCL [Suspect]

REACTIONS (2)
  - BLOOD GLUCOSE INCREASED [None]
  - BLOOD GLUCOSE DECREASED [None]
